FAERS Safety Report 12937379 (Version 1)
Quarter: 2016Q4

REPORT INFORMATION
  Report Type: Spontaneous
  Country: US (occurrence: US)
  Receive Date: 20161114
  Receipt Date: 20161114
  Transmission Date: 20170207
  Serious: Yes (Death)
  Sender: FDA-Public Use
  Company Number: US-SAGENTPRD-2016-US-000052

PATIENT
  Age: 7 Month
  Sex: 0

DRUGS (15)
  1. CYCLOPHOSPHAMIDE. [Concomitant]
     Active Substance: CYCLOPHOSPHAMIDE
  2. METHYLPREDNISOLONE. [Concomitant]
     Active Substance: METHYLPREDNISOLONE
  3. CYTARABINE. [Concomitant]
     Active Substance: CYTARABINE
  4. HYDROCORTISONE. [Concomitant]
     Active Substance: HYDROCORTISONE
  5. MERCAPTOPURINE. [Concomitant]
     Active Substance: MERCAPTOPURINE
  6. PREDNISONE. [Concomitant]
     Active Substance: PREDNISONE
  7. DEXAMETHASONE. [Concomitant]
     Active Substance: DEXAMETHASONE
  8. PEGASPARGASE [Concomitant]
     Active Substance: PEGASPARGASE
  9. ETOPOSIDE. [Concomitant]
     Active Substance: ETOPOSIDE
  10. VINCRISTINE [Concomitant]
     Active Substance: VINCRISTINE
  11. METHOTREXATE. [Concomitant]
     Active Substance: METHOTREXATE
  12. FILGRASTIM [Concomitant]
     Active Substance: FILGRASTIM
  13. LEUCOVORIN CALCIUM FOR INJECTION [Suspect]
     Active Substance: LEUCOVORIN CALCIUM
     Dosage: UNKNOWN
  14. DAUNORUBICIN [Concomitant]
     Active Substance: DAUNORUBICIN
  15. ASPARAGINASE [Concomitant]
     Active Substance: ASPARAGINASE

REACTIONS (8)
  - Cytomegalovirus chorioretinitis [None]
  - Corona virus infection [None]
  - Parainfluenzae virus infection [None]
  - Secondary immunodeficiency [None]
  - Mycobacterium chelonae infection [None]
  - Diffuse alveolar damage [Fatal]
  - Abscess [None]
  - Oesophageal candidiasis [None]
